FAERS Safety Report 14642758 (Version 1)
Quarter: 2018Q1

REPORT INFORMATION
  Report Type: Spontaneous
  Country: US (occurrence: US)
  Receive Date: 20180315
  Receipt Date: 20180315
  Transmission Date: 20180509
  Serious: Yes (Hospitalization)
  Sender: FDA-Public Use
  Company Number: None

PATIENT
  Age: 7 Month
  Sex: Male
  Weight: 4.62 kg

DRUGS (11)
  1. SMOFLIPID [Suspect]
     Active Substance: FISH OIL\MEDIUM-CHAIN TRIGLYCERIDES\OLIVE OIL\SOYBEAN OIL
     Dosage: 0.5GM/KG/DAY DAILY INTRAVENOUS
     Route: 042
  2. ALBUTEROL. [Concomitant]
     Active Substance: ALBUTEROL
  3. CLONIDINE. [Concomitant]
     Active Substance: CLONIDINE
  4. GANCICLOVIR. [Concomitant]
     Active Substance: GANCICLOVIR
  5. HEPARIN FLUSH [Concomitant]
     Active Substance: HEPARIN SODIUM
  6. MORPHINE [Concomitant]
     Active Substance: MORPHINE
  7. PROTONIX [Concomitant]
     Active Substance: PANTOPRAZOLE SODIUM
  8. FLUTICASONE. [Concomitant]
     Active Substance: FLUTICASONE
  9. IPRATROPIUM [Concomitant]
     Active Substance: IPRATROPIUM
  10. PETROLATUM. [Concomitant]
     Active Substance: PETROLATUM
  11. PREDNISOLONE. [Concomitant]
     Active Substance: PREDNISOLONE

REACTIONS (1)
  - Fatty acid deficiency [None]

NARRATIVE: CASE EVENT DATE: 20170609
